FAERS Safety Report 10545307 (Version 1)
Quarter: 2014Q4

REPORT INFORMATION
  Report Type: Other
  Country: GB (occurrence: GB)
  Receive Date: 20141027
  Receipt Date: 20141027
  Transmission Date: 20150529
  Serious: Yes (Hospitalization)
  Sender: FDA-Public Use
  Company Number: GB-MYLANLABS-2014M1007512

PATIENT

DRUGS (2)
  1. PROPOFOL. [Suspect]
     Active Substance: PROPOFOL
     Indication: ANAESTHESIA
     Dosage: 200 MG, UNK
     Route: 042
     Dates: start: 20141001, end: 20141001
  2. ROCURONIUM [Suspect]
     Active Substance: ROCURONIUM BROMIDE
     Indication: ANAESTHESIA
     Dosage: 40 MG, UNK
     Route: 042
     Dates: start: 20141001, end: 20141001

REACTIONS (4)
  - Drug ineffective [Unknown]
  - Extravasation [Recovering/Resolving]
  - Peripheral swelling [Recovering/Resolving]
  - Neuromuscular blockade [Recovering/Resolving]

NARRATIVE: CASE EVENT DATE: 20141001
